FAERS Safety Report 6110965-8 (Version None)
Quarter: 2009Q1

REPORT INFORMATION
  Report Type: 
  Country: None (occurrence: None)
  Receive Date: 20090311
  Receipt Date: 20090302
  Transmission Date: 20090719
  Serious: Yes (Hospitalization)
  Sender: FDA-Public Use
  Company Number: CA-BAYER-200913835NA

PATIENT
  Age: 42 Year

DRUGS (1)
  1. MABCAMPATH [Suspect]
     Indication: T-CELL CHRONIC LYMPHOCYTIC LEUKAEMIA

REACTIONS (1)
  - HERPES VIRUS INFECTION [None]
